FAERS Safety Report 19417202 (Version 1)
Quarter: 2021Q2

REPORT INFORMATION
  Report Type: Spontaneous
  Country: US (occurrence: US)
  Receive Date: 20210614
  Receipt Date: 20210614
  Transmission Date: 20210717
  Serious: No
  Sender: FDA-Public Use
  Company Number: None

PATIENT
  Age: 31 Year
  Sex: Male
  Weight: 113 kg

DRUGS (1)
  1. HYDRALAZINE (HYDRALINE HCL 50MG TAB) [Suspect]
     Active Substance: HYDRALAZINE HYDROCHLORIDE
     Indication: HYPERTENSION
     Route: 048
     Dates: start: 20200630, end: 20201014

REACTIONS (1)
  - Lip swelling [None]

NARRATIVE: CASE EVENT DATE: 20201014
